FAERS Safety Report 5123850-5 (Version None)
Quarter: 2006Q4

REPORT INFORMATION
  Report Type: 
  Country: None (occurrence: None)
  Receive Date: 20061010
  Receipt Date: 20060912
  Transmission Date: 20070319
  Serious: Yes (Hospitalization)
  Sender: FDA-Public Use
  Company Number: JP-JPN-A200603657

PATIENT
  Age: 39 Year
  Sex: Female
  Weight: 44 kg

DRUGS (5)
  1. ZOVIRAX [Suspect]
     Indication: ENCEPHALITIS HERPES
     Dosage: 1500MG PER DAY
     Route: 042
     Dates: start: 20060905, end: 20060908
  2. ALEVIATIN [Suspect]
     Indication: EPILEPSY
     Dates: start: 20060805, end: 20060831
  3. VALTREX [Concomitant]
     Indication: ENCEPHALITIS HERPES
     Dosage: 2000MG PER DAY
     Route: 048
     Dates: start: 20060731, end: 20060807
  4. DEXAMETHASONE TAB [Concomitant]
     Indication: ENCEPHALITIS HERPES
     Dates: start: 20060905
  5. INTRAVENOUS NUTRITIVE MIXTURE [Concomitant]

REACTIONS (6)
  - AKINESIA [None]
  - CONVULSION [None]
  - DRUG TOXICITY [None]
  - DYSKINESIA [None]
  - ENCEPHALITIS HERPES [None]
  - ENCEPHALOPATHY [None]
